FAERS Safety Report 12762733 (Version 3)
Quarter: 2016Q4

REPORT INFORMATION
  Report Type: Report from Study
  Country: BR (occurrence: BR)
  Receive Date: 20160920
  Receipt Date: 20161118
  Transmission Date: 20170207
  Serious: Yes (Disabling, Other)
  Sender: FDA-Public Use
  Company Number: BR-JNJFOC-20160520472

PATIENT
  Age: 66 Year
  Sex: Female

DRUGS (3)
  1. STELARA [Suspect]
     Active Substance: USTEKINUMAB
     Indication: PSORIASIS
     Route: 058
     Dates: start: 20160312
  2. ATENOLOL. [Concomitant]
     Active Substance: ATENOLOL
     Route: 065
  3. PANTOPRAZOLE [Concomitant]
     Active Substance: PANTOPRAZOLE SODIUM
     Route: 065

REACTIONS (12)
  - Psoriasis [Unknown]
  - Influenza [Not Recovered/Not Resolved]
  - Drug ineffective [Unknown]
  - Weight decreased [Unknown]
  - Bone pain [Not Recovered/Not Resolved]
  - Fall [Unknown]
  - Insomnia [Not Recovered/Not Resolved]
  - Arthralgia [Unknown]
  - Dysstasia [Unknown]
  - Gait disturbance [Not Recovered/Not Resolved]
  - Arthralgia [Recovering/Resolving]
  - Muscle atrophy [Unknown]

NARRATIVE: CASE EVENT DATE: 201607
